FAERS Safety Report 22319583 (Version 1)
Quarter: 2023Q2

REPORT INFORMATION
  Report Type: Spontaneous
  Country: US (occurrence: US)
  Receive Date: 20230515
  Receipt Date: 20230515
  Transmission Date: 20230722
  Serious: Yes (Other)
  Sender: FDA-Public Use
  Company Number: US-BRISTOL-MYERS SQUIBB COMPANY-2023-067273

PATIENT
  Age: 73 Year
  Sex: Female

DRUGS (1)
  1. REVLIMID [Suspect]
     Active Substance: LENALIDOMIDE
     Indication: Plasma cell myeloma
     Dosage: FREQUENCY: DAILY ON DAYS 1 TO 14 OF EACH CYCLE OF TREATMENT PER 21 DAYS (14 DAYS ON, 7 DAYS OFF)
     Route: 048
     Dates: start: 202302

REACTIONS (2)
  - Renal impairment [Unknown]
  - Eye swelling [Unknown]

NARRATIVE: CASE EVENT DATE: 20230401
